FAERS Safety Report 6172917-1 (Version None)
Quarter: 2009Q2

REPORT INFORMATION
  Report Type: 
  Country: None (occurrence: None)
  Receive Date: 20090430
  Receipt Date: 20090423
  Transmission Date: 20091009
  Serious: Yes (Other)
  Sender: FDA-Public Use
  Company Number: PHHY2009CA15560

PATIENT
  Sex: Male

DRUGS (2)
  1. SANDOSTATIN LAR [Suspect]
     Indication: ACROMEGALY
     Dosage: 20 MG EVERY 4 WEEKS
     Route: 030
     Dates: start: 20080603
  2. NOVAMOXIN [Concomitant]
     Dosage: 500 MG, TID
     Dates: start: 20090401

REACTIONS (2)
  - NEOPLASM MALIGNANT [None]
  - TOOTH EXTRACTION [None]
